FAERS Safety Report 24357762 (Version 5)
Quarter: 2024Q4

REPORT INFORMATION
  Report Type: Spontaneous
  Country: US (occurrence: US)
  Receive Date: 20240924
  Receipt Date: 20241230
  Transmission Date: 20250115
  Serious: Yes (Life-Threatening, Hospitalization, Disabling, Other)
  Sender: PFIZER
  Company Number: US-PFIZER INC-202400258510

PATIENT
  Age: 21 Year
  Sex: Male
  Weight: 101.59 kg

DRUGS (19)
  1. BUPIVACAINE HYDROCHLORIDE [Suspect]
     Active Substance: BUPIVACAINE HYDROCHLORIDE
     Indication: Spinal pain
     Dosage: UNK
     Route: 030
     Dates: start: 20181022, end: 202203
  2. BUPIVACAINE HYDROCHLORIDE [Suspect]
     Active Substance: BUPIVACAINE HYDROCHLORIDE
     Indication: Back pain
     Dosage: UNK
     Route: 030
     Dates: start: 20200227, end: 20220408
  3. METHYLPREDNISOLONE [Suspect]
     Active Substance: METHYLPREDNISOLONE
     Indication: Back pain
     Dosage: UNK
     Route: 030
     Dates: start: 20181022, end: 20220302
  4. METHYLPREDNISOLONE [Suspect]
     Active Substance: METHYLPREDNISOLONE
     Dosage: UNK
     Route: 030
     Dates: start: 20200227, end: 20220408
  5. LIDOCAINE HYDROCHLORIDE [Suspect]
     Active Substance: LIDOCAINE HYDROCHLORIDE
     Indication: Local anaesthesia
     Dosage: UNK
     Dates: start: 20181022
  6. LIDOCAINE HYDROCHLORIDE [Suspect]
     Active Substance: LIDOCAINE HYDROCHLORIDE
     Dosage: UNK
     Dates: start: 20200227
  7. FISH OIL [Concomitant]
     Active Substance: FISH OIL
     Dosage: 1000 MG, 2X/DAY (1 CAPSULE BY MOUTH TWICE DAILY)
  8. METHYL FOLATE [CALCIUM LEVOMEFOLATE] [Concomitant]
     Dosage: 680 UG, 1X/DAY (1 TABLET DAILY)
  9. VITAMIN D3 [Concomitant]
     Active Substance: CHOLECALCIFEROL
     Dosage: 2000 IU, 1X/DAY(1 TABLET DAILY)
  10. MAGNESIUM [Concomitant]
     Active Substance: MAGNESIUM
     Dosage: 400 MG, 1X/DAY (1 CAPSULE BY MOUTH DAILY)
     Route: 048
  11. AMLODIPINE BESYLATE\BENAZEPRIL HYDROCHLORIDE [Concomitant]
     Active Substance: AMLODIPINE BESYLATE\BENAZEPRIL HYDROCHLORIDE
     Dosage: 10-40 MG, TAKE 1 CAPSULE BY MOUTH DAILY
     Route: 048
  12. BACLOFEN [Concomitant]
     Active Substance: BACLOFEN
     Dosage: UNK, 1X/DAY (TAKE 1 TO 2 TABLETS MOUTH EVERY NIGHT AT BEDTIME)
     Route: 048
  13. GABAPENTIN [Concomitant]
     Active Substance: GABAPENTIN
     Indication: Nerve injury
     Dosage: 300 MG, 1X/DAY
  14. NURTEC ODT [Concomitant]
     Active Substance: RIMEGEPANT SULFATE
     Indication: Migraine
     Dosage: 75 MG, 1X/DAY
  15. NURTEC ODT [Concomitant]
     Active Substance: RIMEGEPANT SULFATE
     Indication: Migraine
     Dosage: 75 MG, AS NEEDED
     Dates: start: 20220317
  16. KENALOG [Concomitant]
     Active Substance: TRIAMCINOLONE ACETONIDE
     Dosage: 40 MG
  17. MARCAINE [Concomitant]
     Active Substance: BUPIVACAINE HYDROCHLORIDE
     Dosage: 0.5%
  18. OMNIPAQUE [Concomitant]
     Active Substance: IOHEXOL
     Dosage: UNK
  19. SODIUM CHLORIDE [Concomitant]
     Active Substance: SODIUM CHLORIDE
     Dosage: 0.9%

REACTIONS (55)
  - Cognitive disorder [Not Recovered/Not Resolved]
  - Transient ischaemic attack [Not Recovered/Not Resolved]
  - Respiratory disorder [Not Recovered/Not Resolved]
  - Cardiac disorder [Not Recovered/Not Resolved]
  - Blood creatine phosphokinase increased [Not Recovered/Not Resolved]
  - Cerebrovascular accident [Not Recovered/Not Resolved]
  - Anxiety [Not Recovered/Not Resolved]
  - Functional gastrointestinal disorder [Not Recovered/Not Resolved]
  - Anaphylactic shock [Unknown]
  - Loss of consciousness [Unknown]
  - Brain injury [Unknown]
  - Cerebrovascular accident [Unknown]
  - Nervous system disorder [Not Recovered/Not Resolved]
  - Withdrawal syndrome [Unknown]
  - Fungal infection [Unknown]
  - Urinary tract infection [Unknown]
  - Hypothalamic pituitary adrenal axis suppression [Unknown]
  - Nervous system disorder [Unknown]
  - Eosinophilia [Unknown]
  - Fall [Unknown]
  - Pain [Unknown]
  - Thyroid disorder [Unknown]
  - Chest pain [Not Recovered/Not Resolved]
  - Hypersensitivity [Unknown]
  - Blood disorder [Unknown]
  - Dyspnoea [Unknown]
  - Panic attack [Unknown]
  - Blood glucose increased [Unknown]
  - Nerve injury [Unknown]
  - Blood thyroid stimulating hormone decreased [Unknown]
  - Insomnia [Unknown]
  - Sleep deficit [Unknown]
  - Sleep disorder [Unknown]
  - Dyspnoea [Unknown]
  - Vertigo [Not Recovered/Not Resolved]
  - Anxiety [Unknown]
  - Panic disorder [Not Recovered/Not Resolved]
  - Hepatic steatosis [Unknown]
  - Confusional state [Unknown]
  - Memory impairment [Unknown]
  - Hypoaesthesia [Unknown]
  - Heart rate irregular [Unknown]
  - Asthenia [Unknown]
  - Balance disorder [Unknown]
  - Migraine [Unknown]
  - Mood altered [Unknown]
  - Feeling cold [Unknown]
  - Anaemia [Unknown]
  - Pain [Not Recovered/Not Resolved]
  - Abdominal discomfort [Not Recovered/Not Resolved]
  - Depression [Not Recovered/Not Resolved]
  - Anger [Not Recovered/Not Resolved]
  - Exposure to noise [Not Recovered/Not Resolved]
  - Irritability [Unknown]
  - Emotional distress [Unknown]

NARRATIVE: CASE EVENT DATE: 20010320
